FAERS Safety Report 18122593 (Version 5)
Quarter: 2021Q1

REPORT INFORMATION
  Report Type: Spontaneous
  Country: IT (occurrence: IT)
  Receive Date: 20200807
  Receipt Date: 20210323
  Transmission Date: 20210419
  Serious: Yes (Death, Hospitalization)
  Sender: FDA-Public Use
  Company Number: IT-BIOGEN-2020BI00894643

PATIENT
  Sex: Female

DRUGS (6)
  1. SPINRAZA [Suspect]
     Active Substance: NUSINERSEN
     Dosage: 1ST LOADING DOSE
     Route: 037
     Dates: start: 20180706
  2. SPINRAZA [Suspect]
     Active Substance: NUSINERSEN
     Dosage: 4TH LOADING DOSE
     Route: 037
     Dates: start: 20180904
  3. SPINRAZA [Suspect]
     Active Substance: NUSINERSEN
     Dosage: 1ST MAINTAINING DOSE
     Route: 037
     Dates: start: 20191109
  4. SPINRAZA [Suspect]
     Active Substance: NUSINERSEN
     Indication: AMYOTROPHIC LATERAL SCLEROSIS
     Route: 037
  5. SPINRAZA [Suspect]
     Active Substance: NUSINERSEN
     Dosage: 2ND LOADING DOSE
     Route: 037
     Dates: start: 20180720
  6. SPINRAZA [Suspect]
     Active Substance: NUSINERSEN
     Dosage: 3RD LOADING DOSE
     Route: 037
     Dates: start: 20180803

REACTIONS (7)
  - Dysphagia [Unknown]
  - Respiratory distress [Unknown]
  - Dehydration [Unknown]
  - Off label use [Unknown]
  - Bradyarrhythmia [Fatal]
  - Weight decreased [Unknown]
  - Respiratory arrest [Fatal]
